FAERS Safety Report 18870829 (Version 5)
Quarter: 2022Q1

REPORT INFORMATION
  Report Type: Spontaneous
  Country: ES (occurrence: ES)
  Receive Date: 20210210
  Receipt Date: 20220127
  Transmission Date: 20220424
  Serious: Yes (Life-Threatening, Hospitalization, Other)
  Sender: FDA-Public Use
  Company Number: ES-MACLEODS PHARMA UK LTD-MAC2021029893

PATIENT
  Age: 30 Year
  Sex: Male

DRUGS (6)
  1. SILDENAFIL [Suspect]
     Active Substance: SILDENAFIL
     Indication: Erectile dysfunction
     Dosage: UNK UNK, ONCE A DAY, UPTO 200 MG, HIGH DOSE
     Route: 048
  2. SILDENAFIL [Suspect]
     Active Substance: SILDENAFIL
     Indication: Sexual dysfunction
     Dosage: 50 MILLIGRAM, ONCE A DAY (50 MILLIGRAM, QD, PILLS)
     Route: 048
  3. SILDENAFIL [Suspect]
     Active Substance: SILDENAFIL
     Dosage: 200 MILLIGRAM, ONCE A DAY (SILDENAFIL ON DEMAND UPTO 200 MG PER DAY
     Route: 048
  4. DIAZEPAM [Concomitant]
     Active Substance: DIAZEPAM
     Indication: Status epilepticus
     Dosage: UNK
     Route: 040
  5. LACOSAMIDE [Concomitant]
     Active Substance: LACOSAMIDE
     Indication: Status epilepticus
     Dosage: 200 MILLIGRAM
     Route: 065
  6. LEVETIRACETAM [Concomitant]
     Active Substance: LEVETIRACETAM
     Indication: Status epilepticus
     Dosage: 1000 MILLIGRAM
     Route: 065

REACTIONS (10)
  - Drug ineffective [Unknown]
  - Status epilepticus [Recovered/Resolved]
  - Bradyphrenia [Unknown]
  - Myoclonus [Recovered/Resolved]
  - Ocular discomfort [Unknown]
  - Intentional overdose [Unknown]
  - Self-medication [Unknown]
  - Overdose [Unknown]
  - Intentional product misuse [Unknown]
  - Generalised tonic-clonic seizure [Unknown]
